FAERS Safety Report 15917122 (Version 1)
Quarter: 2019Q1

REPORT INFORMATION
  Report Type: Spontaneous
  Country: GB (occurrence: GB)
  Receive Date: 20190205
  Receipt Date: 20190205
  Transmission Date: 20190417
  Serious: Yes (Hospitalization)
  Sender: FDA-Public Use
  Company Number: GB-ACCORD-104359

PATIENT
  Age: 82 Year
  Sex: Male

DRUGS (7)
  1. FUROSEMIDE. [Suspect]
     Active Substance: FUROSEMIDE
     Indication: PRODUCT USED FOR UNKNOWN INDICATION
     Route: 048
  2. ADCAL-D3 [Concomitant]
     Active Substance: CALCIUM CARBONATE\CHOLECALCIFEROL
  3. RANITIDINE. [Concomitant]
     Active Substance: RANITIDINE
  4. ATORVASTATIN [Concomitant]
     Active Substance: ATORVASTATIN
  5. APIXABAN [Concomitant]
     Active Substance: APIXABAN
  6. BISOPROLOL [Concomitant]
     Active Substance: BISOPROLOL
  7. RIVASTIGMINE/RIVASTIGMINE TARTRATE [Concomitant]
     Route: 062

REACTIONS (2)
  - Hyponatraemia [Recovered/Resolved]
  - Dehydration [Recovered/Resolved]
